FAERS Safety Report 21986504 (Version 2)
Quarter: 2023Q1

REPORT INFORMATION
  Report Type: Report from Study
  Country: JP (occurrence: JP)
  Receive Date: 20230213
  Receipt Date: 20230223
  Transmission Date: 20230418
  Serious: No
  Sender: FDA-Public Use
  Company Number: JP-MSD-2201JPN003154J

PATIENT
  Age: 61 Year
  Sex: Male

DRUGS (4)
  1. MOLNUPIRAVIR [Suspect]
     Active Substance: MOLNUPIRAVIR
     Indication: COVID-19 treatment
     Dosage: 800 MILLIGRAM, BID
     Route: 048
     Dates: start: 20220121, end: 20220123
  2. DEXTROMETHORPHAN HYDROBROMIDE [Concomitant]
     Active Substance: DEXTROMETHORPHAN HYDROBROMIDE
     Indication: COVID-19 treatment
     Dosage: UNK
     Route: 065
  3. CARBOCYSTEINE [Concomitant]
     Active Substance: CARBOCYSTEINE
     Indication: COVID-19 treatment
     Dosage: UNK
     Route: 065
  4. CALONAL [Concomitant]
     Active Substance: ACETAMINOPHEN
     Indication: COVID-19 treatment
     Dosage: UNK
     Route: 065

REACTIONS (2)
  - Rash [Recovered/Resolved]
  - Product use issue [Unknown]

NARRATIVE: CASE EVENT DATE: 20220121
